FAERS Safety Report 17543026 (Version 2)
Quarter: 2020Q2

REPORT INFORMATION
  Report Type: Report from Study
  Country: None (occurrence: US)
  Receive Date: 20200316
  Receipt Date: 20200507
  Transmission Date: 20200713
  Serious: Yes (Other)
  Sender: FDA-Public Use
  Company Number: US-ABBVIE-20K-163-3223338-00

PATIENT
  Age: 66 Year
  Sex: Female
  Weight: 123.03 kg

DRUGS (10)
  1. HUMIRA [Suspect]
     Active Substance: ADALIMUMAB
     Indication: PSORIATIC ARTHROPATHY
     Route: 058
     Dates: start: 202003
  2. PRAVASTATIN. [Concomitant]
     Active Substance: PRAVASTATIN
     Indication: BLOOD CHOLESTEROL INCREASED
  3. VITAMIN D [Concomitant]
     Active Substance: VITAMIN D NOS
     Indication: VITAMIN D DECREASED
  4. COLCHICINE. [Concomitant]
     Active Substance: COLCHICINE
     Indication: BLOOD URIC ACID INCREASED
  5. COLCHICINE. [Concomitant]
     Active Substance: COLCHICINE
     Indication: ARTHROPATHY
  6. PRINIVIL [Concomitant]
     Active Substance: LISINOPRIL
     Indication: HYPERTENSION
  7. ALLOPURINOL. [Concomitant]
     Active Substance: ALLOPURINOL
     Indication: ARTHROPATHY
  8. ALLOPURINOL. [Concomitant]
     Active Substance: ALLOPURINOL
     Indication: BLOOD URIC ACID INCREASED
  9. HUMIRA [Suspect]
     Active Substance: ADALIMUMAB
     Indication: PSORIASIS
     Route: 058
     Dates: start: 2017, end: 202002
  10. VITAMIN D [Concomitant]
     Active Substance: VITAMIN D NOS
     Indication: BLOOD URIC ACID INCREASED

REACTIONS (26)
  - Pruritus [Recovered/Resolved]
  - Glucose tolerance impaired [Not Recovered/Not Resolved]
  - Pyrexia [Recovering/Resolving]
  - Breast mass [Not Recovered/Not Resolved]
  - Breast discharge [Not Recovered/Not Resolved]
  - Oxygen saturation decreased [Recovering/Resolving]
  - Scab [Recovered/Resolved]
  - Skin exfoliation [Recovered/Resolved]
  - Rash papular [Recovered/Resolved]
  - Peripheral swelling [Not Recovered/Not Resolved]
  - Pain in extremity [Not Recovered/Not Resolved]
  - Skin hypertrophy [Not Recovered/Not Resolved]
  - Mobility decreased [Not Recovered/Not Resolved]
  - Skin discolouration [Recovered/Resolved]
  - Oropharyngeal pain [Recovering/Resolving]
  - Breast mass [Unknown]
  - Grip strength decreased [Not Recovered/Not Resolved]
  - Dermatitis contact [Recovered/Resolved]
  - Aspartate aminotransferase increased [Recovered/Resolved]
  - Mastitis [Recovering/Resolving]
  - Erythema [Recovered/Resolved]
  - Alanine aminotransferase increased [Recovered/Resolved]
  - Papilloma [Not Recovered/Not Resolved]
  - Lacrimation increased [Not Recovered/Not Resolved]
  - Skin tightness [Not Recovered/Not Resolved]
  - Blood glucose increased [Not Recovered/Not Resolved]

NARRATIVE: CASE EVENT DATE: 2017
